FAERS Safety Report 4538363-9 (Version None)
Quarter: 2004Q4

REPORT INFORMATION
  Report Type: 
  Country: None (occurrence: None)
  Receive Date: 20041223
  Receipt Date: 20040916
  Transmission Date: 20050328
  Serious: No
  Sender: FDA-Public Use
  Company Number: US-JNJFOC-20040906203

PATIENT
  Age: 26 Year
  Sex: Female
  Weight: 81.6475 kg

DRUGS (1)
  1. ORTHO EVRA [Suspect]
     Indication: CONTRACEPTION
     Dosage: 1 DOSE(S),  5 IN 5 WEEK, TRANSDERMAL
     Route: 062
     Dates: start: 20040809

REACTIONS (3)
  - FATIGUE [None]
  - LETHARGY [None]
  - SOMNOLENCE [None]
